FAERS Safety Report 4482676-6 (Version None)
Quarter: 2004Q4

REPORT INFORMATION
  Report Type: 
  Country: None (occurrence: None)
  Receive Date: 20041007
  Receipt Date: 20040901
  Transmission Date: 20050328
  Serious: Yes (Hospitalization)
  Sender: FDA-Public Use
  Company Number: 2004UW20460

PATIENT
  Age: 66 Year
  Sex: Male

DRUGS (9)
  1. CRESTOR [Suspect]
  2. VIAGRA [Concomitant]
  3. XANAX [Concomitant]
  4. EFFEXOR [Concomitant]
  5. ATENOLOL [Concomitant]
  6. NEXIUM [Concomitant]
  7. ALTACE [Concomitant]
  8. LIPITOR [Concomitant]
  9. ZOCOR [Concomitant]

REACTIONS (2)
  - RENAL FAILURE ACUTE [None]
  - RHABDOMYOLYSIS [None]
